FAERS Safety Report 14680777 (Version 1)
Quarter: 2018Q1

REPORT INFORMATION
  Report Type: Spontaneous
  Country: US (occurrence: US)
  Receive Date: 20180326
  Receipt Date: 20180326
  Transmission Date: 20180509
  Serious: No
  Sender: FDA-Public Use
  Company Number: US-GLAXOSMITHKLINE-US2018049779

PATIENT
  Sex: Male

DRUGS (7)
  1. NORVASC [Concomitant]
     Active Substance: AMLODIPINE BESYLATE
  2. ISOSORBIDE. [Concomitant]
     Active Substance: ISOSORBIDE
  3. VENTOLIN [Concomitant]
     Active Substance: ALBUTEROL SULFATE
  4. CARVEDILOL. [Concomitant]
     Active Substance: CARVEDILOL
  5. ANORO ELLIPTA [Suspect]
     Active Substance: UMECLIDINIUM BROMIDE\VILANTEROL TRIFENATATE
     Indication: CHRONIC OBSTRUCTIVE PULMONARY DISEASE
     Dosage: 1 PUFF(S), QD
     Route: 055
     Dates: start: 20180209
  6. GABAPENTIN. [Concomitant]
     Active Substance: GABAPENTIN
  7. METHOCARBAMOL. [Concomitant]
     Active Substance: METHOCARBAMOL

REACTIONS (2)
  - Dyspnoea [Unknown]
  - Product quality issue [Unknown]
